FAERS Safety Report 5803135-1 (Version None)
Quarter: 2008Q3

REPORT INFORMATION
  Report Type: 
  Country: None (occurrence: None)
  Receive Date: 20080708
  Receipt Date: 20080630
  Transmission Date: 20090109
  Serious: Yes (Other)
  Sender: FDA-Public Use
  Company Number: JP-MERCK-0806USA01718

PATIENT
  Age: 76 Year
  Sex: Male

DRUGS (3)
  1. SINGULAIR [Suspect]
     Indication: EMPHYSEMA
     Route: 048
     Dates: start: 20070306
  2. SPIRIVA [Suspect]
     Indication: EMPHYSEMA
     Route: 048
  3. URIEF [Suspect]
     Indication: BENIGN PROSTATIC HYPERPLASIA
     Route: 048
     Dates: end: 20080611

REACTIONS (1)
  - GYNAECOMASTIA [None]
